FAERS Safety Report 14827005 (Version 2)
Quarter: 2018Q3

REPORT INFORMATION
  Report Type: Spontaneous
  Country: JP (occurrence: JP)
  Receive Date: 20180430
  Receipt Date: 20180703
  Transmission Date: 20181010
  Serious: Yes (Other)
  Sender: FDA-Public Use
  Company Number: JP-SHIONOGI, INC-2018000783

PATIENT
  Age: 65 Year
  Sex: Female

DRUGS (4)
  1. METHAPAIN [Concomitant]
     Active Substance: METHADONE HYDROCHLORIDE
     Dosage: UNK
     Route: 065
  2. SYMPROIC [Suspect]
     Active Substance: NALDEMEDINE
     Dosage: UNK
     Route: 048
  3. LINZESS [Concomitant]
     Active Substance: LINACLOTIDE
     Indication: LAXATIVE SUPPORTIVE CARE
     Dosage: UNK
     Route: 065
  4. LACTULOSE. [Concomitant]
     Active Substance: LACTULOSE
     Indication: LAXATIVE SUPPORTIVE CARE
     Dosage: UNK
     Route: 065

REACTIONS (1)
  - Large intestinal ulcer haemorrhage [Recovering/Resolving]

NARRATIVE: CASE EVENT DATE: 20180415
